FAERS Safety Report 10818039 (Version 6)
Quarter: 2016Q3

REPORT INFORMATION
  Report Type: Spontaneous
  Country: US (occurrence: US)
  Receive Date: 20150218
  Receipt Date: 20160823
  Transmission Date: 20161109
  Serious: Yes (Disabling)
  Sender: FDA-Public Use
  Company Number: US-009507513-1205USA03383

PATIENT
  Sex: Male
  Weight: 69.84 kg

DRUGS (2)
  1. PROPECIA [Suspect]
     Active Substance: FINASTERIDE
     Indication: ANDROGENETIC ALOPECIA
     Dosage: 1 MG, UNK
     Route: 048
     Dates: start: 20081009, end: 20081109
  2. ADDERALL [Concomitant]
     Active Substance: AMPHETAMINE ASPARTATE\AMPHETAMINE SULFATE\DEXTROAMPHETAMINE SACCHARATE\DEXTROAMPHETAMINE SULFATE
     Indication: ATTENTION DEFICIT/HYPERACTIVITY DISORDER
     Dosage: UNK
     Dates: start: 1996

REACTIONS (24)
  - Cognitive disorder [Not Recovered/Not Resolved]
  - Anxiety [Unknown]
  - Tooth disorder [Unknown]
  - Malaise [Unknown]
  - Fatigue [Not Recovered/Not Resolved]
  - Muscular weakness [Not Recovered/Not Resolved]
  - Vitamin D deficiency [Unknown]
  - Depression [Not Recovered/Not Resolved]
  - Sleep disorder [Unknown]
  - Apathy [Unknown]
  - Sexual dysfunction [Not Recovered/Not Resolved]
  - Road traffic accident [Unknown]
  - Osteoarthritis [Unknown]
  - Loss of libido [Not Recovered/Not Resolved]
  - Testicular failure [Not Recovered/Not Resolved]
  - Anorgasmia [Unknown]
  - Hypothyroidism [Unknown]
  - Dizziness [Unknown]
  - Stress [Unknown]
  - Back pain [Unknown]
  - Disturbance in sexual arousal [Unknown]
  - Joint injury [Not Recovered/Not Resolved]
  - Premature ejaculation [Unknown]
  - Erectile dysfunction [Unknown]

NARRATIVE: CASE EVENT DATE: 2008
